FAERS Safety Report 9650895 (Version 1)
Quarter: 2013Q4

REPORT INFORMATION
  Report Type: Spontaneous
  Country: US (occurrence: US)
  Receive Date: 20131029
  Receipt Date: 20131029
  Transmission Date: 20140711
  Serious: No
  Sender: FDA-Public Use
  Company Number: US-PFIZER INC-2013304797

PATIENT
  Age: 59 Year
  Sex: Female
  Weight: 113 kg

DRUGS (4)
  1. EFFEXOR XR [Suspect]
     Indication: DEPRESSION
     Dosage: 375 MG, DAILY
     Dates: start: 2005
  2. CALAN - SLOW RELEASE [Concomitant]
     Indication: HYPERTENSION
     Dosage: UNK, 2X/DAY
  3. PREMPRO [Concomitant]
     Dosage: UNK
  4. VITAMIN D [Concomitant]
     Dosage: 4000 IU, DAILY

REACTIONS (5)
  - Malaise [Unknown]
  - Dizziness [Unknown]
  - Disorientation [Unknown]
  - Headache [Unknown]
  - Feeling abnormal [Unknown]
